FAERS Safety Report 25572492 (Version 2)
Quarter: 2025Q3

REPORT INFORMATION
  Report Type: Spontaneous
  Country: JP (occurrence: JP)
  Receive Date: 20250717
  Receipt Date: 20250804
  Transmission Date: 20251020
  Serious: No
  Sender: DAIICHI
  Company Number: JP-DSJP-DS-2025-147234-JP

PATIENT
  Age: 66 Year
  Sex: Female

DRUGS (18)
  1. ENHERTU [Suspect]
     Active Substance: FAM-TRASTUZUMAB DERUXTECAN-NXKI
     Indication: HER2 positive breast cancer
     Dosage: 5.4 MG/KG, ONCE EVERY 3 WK
     Route: 041
     Dates: start: 20240516, end: 20240516
  2. ENHERTU [Suspect]
     Active Substance: FAM-TRASTUZUMAB DERUXTECAN-NXKI
     Dosage: 5.0 MG/KG, ONCE EVERY 3 WK
     Route: 041
     Dates: start: 20240606, end: 20240718
  3. ENHERTU [Suspect]
     Active Substance: FAM-TRASTUZUMAB DERUXTECAN-NXKI
     Dosage: 4.4 MG/KG, ONCE EVERY 3 WK
     Route: 041
     Dates: start: 20240815
  4. PALONOSETRON HYDROCHLORIDE [Concomitant]
     Active Substance: PALONOSETRON HYDROCHLORIDE
     Indication: Product used for unknown indication
     Dosage: 0.75MG/50ML, QD
     Route: 041
     Dates: start: 20240516
  5. DECADRON (DEXAMETHASONE SODIUM PHOSPHATE) [Concomitant]
     Active Substance: DEXAMETHASONE SODIUM PHOSPHATE
     Indication: Product used for unknown indication
     Dosage: 6.6MG,2ML, QD
     Route: 041
     Dates: start: 20240516
  6. FOSNETUPITANT CHLORIDE HYDROCHLORIDE [Concomitant]
     Active Substance: FOSNETUPITANT CHLORIDE HYDROCHLORIDE
     Indication: Product used for unknown indication
     Dosage: 235MG, QD
     Route: 041
     Dates: start: 20240516
  7. LOXOPROFEN SODIUM [Concomitant]
     Active Substance: LOXOPROFEN SODIUM
     Indication: Product used for unknown indication
     Route: 065
  8. REBAMIPIDE [Concomitant]
     Active Substance: REBAMIPIDE
     Indication: Product used for unknown indication
     Route: 065
  9. OXYCODONE HYDROCHLORIDE [Concomitant]
     Active Substance: OXYCODONE HYDROCHLORIDE
     Indication: Product used for unknown indication
     Route: 065
  10. NAUZELIN [Concomitant]
     Active Substance: DOMPERIDONE
     Indication: Product used for unknown indication
     Route: 065
  11. SODIUM FERROUS CITRATE [Concomitant]
     Active Substance: SODIUM FERROUS CITRATE
     Indication: Product used for unknown indication
     Route: 065
  12. DECADRON [Concomitant]
     Active Substance: DEXAMETHASONE
     Indication: Product used for unknown indication
     Route: 065
  13. MAGNESIUM OXIDE [Concomitant]
     Active Substance: MAGNESIUM OXIDE
     Indication: Product used for unknown indication
     Route: 065
  14. LIVALO [Concomitant]
     Active Substance: PITAVASTATIN CALCIUM
     Indication: Product used for unknown indication
     Route: 065
  15. EDOXABAN TOSYLATE [Concomitant]
     Active Substance: EDOXABAN TOSYLATE
     Indication: Product used for unknown indication
     Route: 065
  16. JANUVIA [Concomitant]
     Active Substance: SITAGLIPTIN PHOSPHATE
     Indication: Product used for unknown indication
     Route: 065
  17. AZILSARTAN KAMEDOXOMIL [Concomitant]
     Active Substance: AZILSARTAN KAMEDOXOMIL
     Indication: Product used for unknown indication
     Route: 065
  18. GLUFAST OD [Concomitant]
     Indication: Product used for unknown indication
     Dosage: 10 MG, TID
     Route: 065

REACTIONS (4)
  - Weight decreased [Recovering/Resolving]
  - Haemoglobin decreased [Recovering/Resolving]
  - Anaemia [Recovering/Resolving]
  - Interstitial lung disease [Recovered/Resolved]

NARRATIVE: CASE EVENT DATE: 20240606
